FAERS Safety Report 16022982 (Version 2)
Quarter: 2019Q1

REPORT INFORMATION
  Report Type: Spontaneous
  Country: US (occurrence: US)
  Receive Date: 20190301
  Receipt Date: 20190322
  Transmission Date: 20190418
  Serious: Yes (Other)
  Sender: FDA-Public Use
  Company Number: US-BEH-2019099700

PATIENT
  Age: 50 Year
  Sex: Female

DRUGS (1)
  1. PRIVIGEN [Suspect]
     Active Substance: HUMAN IMMUNOGLOBULIN G
     Indication: CHRONIC INFLAMMATORY DEMYELINATING POLYRADICULONEUROPATHY
     Dosage: 662 ML, EVERY 3 WEEKS
     Route: 042

REACTIONS (4)
  - Skin lesion [Recovered/Resolved]
  - Skin plaque [Recovered/Resolved]
  - Cutaneous lupus erythematosus [Recovered/Resolved]
  - Rash [Recovered/Resolved]
